FAERS Safety Report 22953933 (Version 3)
Quarter: 2023Q4

REPORT INFORMATION
  Report Type: Report from Study
  Country: US (occurrence: US)
  Receive Date: 20230918
  Receipt Date: 20231012
  Transmission Date: 20240109
  Serious: Yes (Death, Other)
  Sender: FDA-Public Use
  Company Number: US-PFIZER INC-PV202300131285

PATIENT
  Age: 76 Year
  Sex: Male
  Weight: 63.492 kg

DRUGS (6)
  1. VYNDAMAX [Suspect]
     Active Substance: TAFAMIDIS
     Indication: Acquired ATTR amyloidosis
     Dosage: 61 MG, 1X/DAY (TAKE 61 MG BY MOUTH IN THE MORNING)
     Route: 048
     Dates: start: 20230720
  2. CRESTOR [Concomitant]
     Active Substance: ROSUVASTATIN CALCIUM
     Dosage: 20 MG
  3. DEMADEX [Concomitant]
     Active Substance: TORSEMIDE
     Dosage: 20 MG
  4. MORNIFLUMATE [Concomitant]
     Active Substance: MORNIFLUMATE
     Dosage: 0.4 MG
  5. JARDIANCE [Concomitant]
     Active Substance: EMPAGLIFLOZIN
     Dosage: 10 MG
  6. ZETIA [Concomitant]
     Active Substance: EZETIMIBE
     Dosage: 10 MG

REACTIONS (1)
  - Death [Fatal]

NARRATIVE: CASE EVENT DATE: 20230816
